FAERS Safety Report 11859881 (Version 1)
Quarter: 2015Q4

REPORT INFORMATION
  Report Type: Spontaneous
  Country: US (occurrence: US)
  Receive Date: 20151222
  Receipt Date: 20151222
  Transmission Date: 20160305
  Serious: Yes (Hospitalization)
  Sender: FDA-Public Use
  Company Number: US-AUROBINDO-AUR-APL-2015-11573

PATIENT
  Age: 72 Year
  Sex: Female

DRUGS (2)
  1. DONEPEZIL 5 MG [Suspect]
     Active Substance: DONEPEZIL
     Indication: PRODUCT USED FOR UNKNOWN INDICATION
     Dosage: 5 MG, UNK
     Route: 065
  2. DONEPEZIL 5 MG [Suspect]
     Active Substance: DONEPEZIL
     Dosage: 10 MG, DAILY
     Route: 065

REACTIONS (18)
  - Cognitive disorder [Recovered/Resolved]
  - Irritability [Recovered/Resolved]
  - Loose associations [Recovered/Resolved]
  - Mania [Recovered/Resolved]
  - Flight of ideas [Recovered/Resolved]
  - Pressure of speech [Recovered/Resolved]
  - Abnormal behaviour [Recovered/Resolved]
  - Affect lability [Recovered/Resolved]
  - Jealous delusion [Recovered/Resolved]
  - Delusion [Recovered/Resolved]
  - Agitation [Recovered/Resolved]
  - Psychomotor hyperactivity [Recovered/Resolved]
  - Grandiosity [Recovered/Resolved]
  - Hypersexuality [Recovered/Resolved]
  - Insomnia [Recovered/Resolved]
  - Aggression [Recovered/Resolved]
  - Euphoric mood [Recovered/Resolved]
  - Tearfulness [Recovered/Resolved]
